FAERS Safety Report 5959448-6 (Version None)
Quarter: 2008Q4

REPORT INFORMATION
  Report Type: 
  Country: None (occurrence: None)
  Receive Date: 20081119
  Receipt Date: 20081119
  Transmission Date: 20090506
  Serious: Yes (Life-Threatening)
  Sender: FDA-Public Use
  Company Number: None

PATIENT
  Age: 19 Year
  Sex: Male
  Weight: 57 kg

DRUGS (1)
  1. QUETIAPINE FUMARATE [Suspect]
     Dosage: 6000 MG ONCE PO
     Route: 048
     Dates: start: 20080302

REACTIONS (5)
  - HEART RATE INCREASED [None]
  - INCORRECT DOSE ADMINISTERED [None]
  - OXYGEN SATURATION DECREASED [None]
  - SOMNOLENCE [None]
  - UNRESPONSIVE TO STIMULI [None]
